FAERS Safety Report 7772230-2 (Version None)
Quarter: 2011Q3

REPORT INFORMATION
  Report Type: 
  Country: None (occurrence: None)
  Receive Date: 20110922
  Receipt Date: 20110303
  Transmission Date: 20111222
  Serious: No
  Sender: FDA-Public Use
  Company Number: US-ASTRAZENECA-2011SE12061

PATIENT
  Age: 33 Year
  Sex: Female
  Weight: 74.8 kg

DRUGS (4)
  1. GENERIC OF LAMICTIL [Concomitant]
  2. METOPROLOL [Concomitant]
     Indication: ANXIETY
  3. METOPROLOL [Concomitant]
     Indication: BLOOD PRESSURE
  4. SEROQUEL XR [Suspect]
     Indication: BIPOLAR DISORDER
     Route: 048

REACTIONS (5)
  - INSOMNIA [None]
  - MALAISE [None]
  - WITHDRAWAL SYNDROME [None]
  - EMOTIONAL DISORDER [None]
  - DRUG DOSE OMISSION [None]
